FAERS Safety Report 20362180 (Version 1)
Quarter: 2022Q1

REPORT INFORMATION
  Report Type: Report from Study
  Country: DE (occurrence: DE)
  Receive Date: 20220121
  Receipt Date: 20220121
  Transmission Date: 20220423
  Serious: Yes (Hospitalization, Other)
  Sender: FDA-Public Use
  Company Number: DE-MYLANLABS-2022M1005743

PATIENT
  Age: 56 Year
  Sex: Male

DRUGS (7)
  1. DOXORUBICIN [Suspect]
     Active Substance: DOXORUBICIN
     Indication: Leiomyosarcoma recurrent
     Dosage: UNK
     Route: 065
  2. GEMCITABINE [Suspect]
     Active Substance: GEMCITABINE
     Indication: Leiomyosarcoma recurrent
     Dosage: 1000 MILLIGRAM/SQ. METER, CYCLE,MAINTENANCE MONOTHERAPY; INITIALLY RECEIVED THREE FULLY....
     Route: 065
  3. GEMCITABINE [Suspect]
     Active Substance: GEMCITABINE
     Dosage: 500 MILLIGRAM/SQ. METER, Q2W, DOSE OF GEMCITABINE WAS REDUCED TO 500 MG/M 2 , WHICH WAS ADMINISTERED
     Route: 065
  4. PEGFILGRASTIM [Suspect]
     Active Substance: PEGFILGRASTIM
     Indication: Neutropenia
     Dosage: CYCLE, PEGFILGRASTIM SUPPORT ON DAYS 2 AND 16 WITH CYCLE REPETITION ON DAY 29
     Route: 065
  5. DACARBAZINE [Suspect]
     Active Substance: DACARBAZINE
     Indication: Leiomyosarcoma recurrent
     Dosage: UNK
     Route: 065
  6. GEMCITABINE [Concomitant]
     Active Substance: GEMCITABINE
     Indication: Leiomyosarcoma recurrent
     Dosage: PART OF COMBINED THERAPY
     Route: 065
  7. DOCETAXEL [Concomitant]
     Active Substance: DOCETAXEL
     Indication: Leiomyosarcoma recurrent
     Dosage: PART OF COMBINED THERAPY
     Route: 065

REACTIONS (3)
  - Drug ineffective [Unknown]
  - Neutropenia [Not Recovered/Not Resolved]
  - Off label use [Unknown]
